FAERS Safety Report 25012727 (Version 1)
Quarter: 2025Q1

REPORT INFORMATION
  Report Type: Spontaneous
  Country: US (occurrence: None)
  Receive Date: 20250225
  Receipt Date: 20250225
  Transmission Date: 20250409
  Serious: No
  Sender: FDA-CTU
  Company Number: None

PATIENT
  Age: 36 Year
  Sex: Female
  Weight: 68.04 kg

DRUGS (3)
  1. LURASIDONE [Suspect]
     Active Substance: LURASIDONE
     Indication: Bipolar disorder
  2. INSULIN LISPRO [Concomitant]
     Active Substance: INSULIN LISPRO
  3. INSULIN GLARGINE [Concomitant]
     Active Substance: INSULIN GLARGINE

REACTIONS (3)
  - Exposure during pregnancy [None]
  - Gestational hypertension [None]
  - Pre-eclampsia [None]

NARRATIVE: CASE EVENT DATE: 20211209
